FAERS Safety Report 7084443 (Version 3)
Quarter: 2020Q3

REPORT INFORMATION
  Report Type: Report from Study
  Country: AR (occurrence: AR)
  Receive Date: 20090818
  Receipt Date: 20091009
  Transmission Date: 20201104
  Serious: Yes (Hospitalization, Disabling)
  Sender: FDA-Public Use
  Company Number: AR-WYE-H10548309

PATIENT
  Age: 51 Year
  Sex: Male
  Weight: 93 kg

DRUGS (2)
  1. TEMSIROLIMUS. [Suspect]
     Active Substance: TEMSIROLIMUS
     Indication: RENAL CANCER
     Route: 042
     Dates: start: 20090708, end: 20090805
  2. BEVACIZUMAB. [Suspect]
     Active Substance: BEVACIZUMAB
     Indication: RENAL CANCER
     Route: 042
     Dates: start: 20090708, end: 20090805

REACTIONS (1)
  - Anorectal cellulitis [Recovered/Resolved]

NARRATIVE: CASE EVENT DATE: 20090808
